FAERS Safety Report 6399998-4 (Version None)
Quarter: 2009Q4

REPORT INFORMATION
  Report Type: 
  Country: None (occurrence: None)
  Receive Date: 20091014
  Receipt Date: 20091005
  Transmission Date: 20100525
  Serious: Yes (Other)
  Sender: FDA-Public Use
  Company Number: RO-ELI_LILLY_AND_COMPANY-RO200910001310

PATIENT
  Sex: Female
  Weight: 94 kg

DRUGS (6)
  1. BYETTA [Suspect]
     Indication: TYPE 2 DIABETES MELLITUS
     Dosage: 10 UG, UNK
     Route: 065
     Dates: start: 20080201
  2. SIOFOR [Concomitant]
     Indication: DIABETES MELLITUS
     Dosage: 1000 MG, 2/W
     Route: 065
  3. GLUCOTROL [Concomitant]
     Indication: DIABETES MELLITUS
     Dosage: 10 MG, 2/D
  4. PRESTARIUM [Concomitant]
     Indication: HYPERTENSION
     Dosage: 5 MG, DAILY (1/D)
     Route: 065
  5. METOPROLOL [Concomitant]
     Indication: ARRHYTHMIA
     Dosage: 50 MG, DAILY (1/D)
     Route: 065
  6. ZOLOFT [Concomitant]
     Indication: DEPRESSION
     Dosage: UNK UNK, DAILY (1/D)
     Route: 065

REACTIONS (1)
  - VENTRICULAR EXTRASYSTOLES [None]
